FAERS Safety Report 9500182 (Version 1)
Quarter: 2013Q3

REPORT INFORMATION
  Report Type: Spontaneous
  Country: US (occurrence: US)
  Receive Date: 20130905
  Receipt Date: 20130905
  Transmission Date: 20140515
  Serious: No
  Sender: FDA-Public Use
  Company Number: US-BAYER-2013-107223

PATIENT
  Age: 81 Year
  Sex: Female
  Weight: 36 kg

DRUGS (2)
  1. ALEVE CAPLET [Suspect]
     Indication: CARTILAGE INJURY
     Dosage: 2 DF, QD
     Route: 048
     Dates: start: 201308
  2. LIPITOR [Concomitant]

REACTIONS (1)
  - Faeces discoloured [Recovered/Resolved]
